FAERS Safety Report 9321636 (Version 1)
Quarter: 2013Q2

REPORT INFORMATION
  Report Type: Spontaneous
  Country: US (occurrence: US)
  Receive Date: 20130531
  Receipt Date: 20130531
  Transmission Date: 20140414
  Serious: Yes (Other)
  Sender: FDA-Public Use
  Company Number: US-ROCHE-1227384

PATIENT
  Age: 15 Year
  Sex: Female

DRUGS (3)
  1. VEMURAFENIB [Suspect]
     Indication: METASTATIC MALIGNANT MELANOMA
     Route: 065
  2. VEMURAFENIB [Suspect]
     Dosage: FOR 3 DAYS
     Route: 065
  3. INTERFERON ALFA-2A [Suspect]
     Indication: METASTATIC MALIGNANT MELANOMA
     Route: 065

REACTIONS (6)
  - Hepatic haemorrhage [Unknown]
  - Hepatic necrosis [Unknown]
  - Hepatotoxicity [Unknown]
  - Rash papular [Unknown]
  - Erythema [Unknown]
  - Fatigue [Unknown]
